FAERS Safety Report 8153291-8 (Version None)
Quarter: 2012Q1

REPORT INFORMATION
  Report Type: 
  Country: None (occurrence: None)
  Receive Date: 20120221
  Receipt Date: 20120209
  Transmission Date: 20120608
  Serious: Yes (Other)
  Sender: FDA-Public Use
  Company Number: FR-ELI_LILLY_AND_COMPANY-FR201202002576

PATIENT
  Sex: Male

DRUGS (3)
  1. OLANZAPINE [Suspect]
     Dosage: 405 MG, EVERY THREE WEEKS
     Route: 030
     Dates: start: 20111006, end: 20111117
  2. TERCIAN [Concomitant]
     Dosage: 50 MG, TID
     Dates: start: 20111107, end: 20111122
  3. PRAZEPAM [Concomitant]
     Dosage: 30 DROPS, TID
     Dates: start: 20111107

REACTIONS (1)
  - URINARY RETENTION [None]
